FAERS Safety Report 21659225 (Version 1)
Quarter: 2022Q4

REPORT INFORMATION
  Report Type: Spontaneous
  Country: US (occurrence: None)
  Receive Date: 20221129
  Receipt Date: 20221129
  Transmission Date: 20230112
  Serious: No
  Sender: FDA-Public Use
  Company Number: None

PATIENT
  Sex: Male
  Weight: 110 kg

DRUGS (2)
  1. CYTARABINE [Suspect]
     Active Substance: CYTARABINE
  2. METHOTREXATE [Concomitant]
     Active Substance: METHOTREXATE

REACTIONS (4)
  - Febrile neutropenia [None]
  - Platelet count decreased [None]
  - Platelet transfusion [None]
  - White blood cell count decreased [None]

NARRATIVE: CASE EVENT DATE: 20221123
